FAERS Safety Report 9771787 (Version 1)
Quarter: 2013Q4

REPORT INFORMATION
  Report Type: Spontaneous
  Country: US (occurrence: US)
  Receive Date: 20131219
  Receipt Date: 20131219
  Transmission Date: 20140711
  Serious: Yes (Hospitalization)
  Sender: FDA-Public Use
  Company Number: US-SUN PHARMACEUTICAL INDUSTRIES LTD-2013SUN05212

PATIENT
  Age: 67 Year
  Sex: Female

DRUGS (4)
  1. CARVEDILOL 3.125 MG TABLET [Suspect]
     Indication: HYPERTENSION
     Dosage: 3.125 MG, BID
     Route: 065
  2. AMLODIPINE [Concomitant]
  3. ASPIRIN [Concomitant]
  4. LEVOTHYROXINE [Concomitant]

REACTIONS (1)
  - Drug-induced liver injury [Recovering/Resolving]
